FAERS Safety Report 5258408-0 (Version None)
Quarter: 2007Q1

REPORT INFORMATION
  Report Type: 
  Country: None (occurrence: None)
  Receive Date: 20070306
  Receipt Date: 20070306
  Transmission Date: 20070707
  Serious: Yes (Other)
  Sender: FDA-Public Use
  Company Number: None

PATIENT
  Sex: Female
  Weight: 54.4316 kg

DRUGS (2)
  1. ZOCOR [Suspect]
     Indication: BLOOD CHOLESTEROL
     Dosage: 20 MG 1 TAB DAILY
     Dates: start: 20040623, end: 20050301
  2. NIACIN [Suspect]
     Indication: BLOOD CHOLESTEROL
     Dosage: 500 MG 1 TAB DAILY
     Dates: start: 20050301

REACTIONS (7)
  - BONE PAIN [None]
  - DYSPEPSIA [None]
  - MUSCLE DISORDER [None]
  - MUSCULAR WEAKNESS [None]
  - MYALGIA [None]
  - PALPITATIONS [None]
  - PRURITUS [None]
